FAERS Safety Report 8889218 (Version 2)
Quarter: 2012Q4

REPORT INFORMATION
  Report Type: 
  Country: JP (occurrence: JP)
  Receive Date: 20121106
  Receipt Date: 20121204
  Transmission Date: 20130627
  Serious: Yes (Death, Other)
  Sender: FDA-Public Use
  Company Number: JP-PFIZER INC-2012273140

PATIENT

DRUGS (3)
  1. PRODIF [Suspect]
     Indication: MENINGITIS CRYPTOCOCCAL
  2. AMPHOTERICINE B [Suspect]
     Indication: MENINGITIS CRYPTOCOCCAL
  3. FLUCYTOSINE [Suspect]
     Indication: MENINGITIS CRYPTOCOCCAL

REACTIONS (4)
  - Arrhythmia [Fatal]
  - Multi-organ failure [Fatal]
  - Renal impairment [Unknown]
  - Hypokalaemia [Unknown]
